FAERS Safety Report 23936958 (Version 1)
Quarter: 2024Q2

REPORT INFORMATION
  Report Type: Spontaneous
  Country: US (occurrence: US)
  Receive Date: 20240604
  Receipt Date: 20240604
  Transmission Date: 20240716
  Serious: No
  Sender: FDA-Public Use
  Company Number: US-TEVA-VS-3200704

PATIENT
  Age: 62 Year
  Sex: Female
  Weight: 50.349 kg

DRUGS (2)
  1. COPAXONE [Suspect]
     Active Substance: GLATIRAMER ACETATE
     Indication: Multiple sclerosis
     Dosage: TIME INTERVAL: 0.33333333 WEEKS
     Route: 065
  2. COPAXONE [Suspect]
     Active Substance: GLATIRAMER ACETATE

REACTIONS (5)
  - Fine motor skill dysfunction [Unknown]
  - Flushing [Unknown]
  - Injection site pain [Unknown]
  - Trigeminal neuralgia [Unknown]
  - Amnesia [Unknown]
